APPROVED DRUG PRODUCT: ZYNRELEF KIT
Active Ingredient: BUPIVACAINE; MELOXICAM
Strength: 60MG/2.3ML (29.25MG/ML);1.8MG/2.3ML (0.88MG/ML)
Dosage Form/Route: SOLUTION, EXTENDED RELEASE;PERIARTICULAR
Application: N211988 | Product #001
Applicant: HERON THERAPEUTICS INC
Approved: May 12, 2021 | RLD: Yes | RS: No | Type: DISCN

PATENTS:
Patent 11413350 | Expires: Apr 20, 2035
Patent 9592227 | Expires: Mar 13, 2034
Patent 9694079 | Expires: Apr 20, 2035
Patent 9801945 | Expires: Apr 20, 2035
Patent 10213510 | Expires: Apr 20, 2035
Patent 9913909 | Expires: Mar 13, 2034
Patent 10098957 | Expires: Apr 20, 2035
Patent 10632199 | Expires: Apr 20, 2035
Patent 10898575 | Expires: Apr 20, 2035
Patent 11083797 | Expires: Apr 20, 2035
Patent 11253504 | Expires: Mar 13, 2034
Patent 11844837 | Expires: Apr 21, 2036
Patent 11083730 | Expires: Apr 20, 2035
Patent 10398686 | Expires: Mar 13, 2034
Patent 9744163 | Expires: Mar 13, 2034
Patent 10980886 | Expires: Apr 20, 2035

EXCLUSIVITY:
Code: I-933 | Date: Jan 23, 2027